FAERS Safety Report 20720066 (Version 3)
Quarter: 2022Q2

REPORT INFORMATION
  Report Type: Spontaneous
  Country: US (occurrence: US)
  Receive Date: 20220418
  Receipt Date: 20220513
  Transmission Date: 20220721
  Serious: No
  Sender: FDA-Public Use
  Company Number: US-PFIZER INC-202200579492

PATIENT
  Age: 74 Year
  Sex: Female
  Weight: 70.31 kg

DRUGS (1)
  1. IBRANCE [Suspect]
     Active Substance: PALBOCICLIB
     Indication: Neoplasm
     Dosage: UNK, CYCLIC:ONE A DAY, FOR 21 DAYS AND 7 DAYS OFF
     Dates: start: 20220331

REACTIONS (4)
  - Dysphagia [Not Recovered/Not Resolved]
  - Early satiety [Unknown]
  - Off label use [Unknown]
  - Off label use [Unknown]
